FAERS Safety Report 20244885 (Version 1)
Quarter: 2021Q4

REPORT INFORMATION
  Report Type: Report from Study
  Country: CN (occurrence: CN)
  Receive Date: 20211229
  Receipt Date: 20211229
  Transmission Date: 20220303
  Serious: Yes (Hospitalization)
  Sender: FDA-Public Use
  Company Number: CN-SUN PHARMACEUTICAL INDUSTRIES LTD-2021R1-300228

PATIENT
  Age: 19 Year
  Sex: Male
  Weight: 63 kg

DRUGS (3)
  1. TILDRAKIZUMAB [Suspect]
     Active Substance: TILDRAKIZUMAB
     Indication: Psoriasis
     Dosage: 100 MILLIGRAM, DAILY
     Route: 058
     Dates: start: 20210309, end: 20210309
  2. Double laryngeal paralysis [Concomitant]
     Indication: Product used for unknown indication
     Dosage: 1 PACKET, BID
     Route: 048
     Dates: start: 20210425, end: 20210502
  3. Kangkang [Concomitant]
     Indication: Product used for unknown indication
     Dosage: 1 TABLET, BID
     Route: 048
     Dates: start: 20210421, end: 20210424

REACTIONS (1)
  - Humerus fracture [Unknown]

NARRATIVE: CASE EVENT DATE: 20210602
